FAERS Safety Report 25527887 (Version 3)
Quarter: 2025Q4

REPORT INFORMATION
  Report Type: Report from Study
  Country: US (occurrence: US)
  Receive Date: 20250708
  Receipt Date: 20251024
  Transmission Date: 20260117
  Serious: No
  Sender: AVERITAS
  Company Number: US-GRUNENTHAL-2025-109969

PATIENT
  Age: 59 Year
  Sex: Female

DRUGS (4)
  1. QUTENZA [Suspect]
     Active Substance: CAPSAICIN
     Indication: Diabetic neuropathy
     Dosage: UNK
     Route: 061
     Dates: start: 20250701, end: 20250701
  2. QUTENZA [Suspect]
     Active Substance: CAPSAICIN
     Dosage: UNK
     Route: 061
     Dates: start: 20251007, end: 20251007
  3. LYRICA [Concomitant]
     Active Substance: PREGABALIN
     Indication: Product used for unknown indication
     Dosage: 75 MILLIGRAM, 2/DAY
     Route: 065
  4. GABAPENTIN [Concomitant]
     Active Substance: GABAPENTIN
     Indication: Product used for unknown indication
     Dosage: UNK
     Route: 065

REACTIONS (3)
  - Application site pain [Not Recovered/Not Resolved]
  - Neuropathy peripheral [Unknown]
  - Burning sensation [Recovered/Resolved]

NARRATIVE: CASE EVENT DATE: 20250702
